FAERS Safety Report 12823359 (Version 1)
Quarter: 2016Q4

REPORT INFORMATION
  Report Type: Spontaneous
  Country: GB (occurrence: GB)
  Receive Date: 20161006
  Receipt Date: 20161006
  Transmission Date: 20170207
  Serious: Yes (Hospitalization)
  Sender: FDA-Public Use
  Company Number: GB-MYLANLABS-2016M1042496

PATIENT

DRUGS (7)
  1. LACTULOSE. [Concomitant]
     Active Substance: LACTULOSE
     Dosage: UNK
  2. TRAMADOL. [Concomitant]
     Active Substance: TRAMADOL
     Dosage: UNK
  3. TERBINAFINE. [Concomitant]
     Active Substance: TERBINAFINE
     Dosage: UNK
  4. LEVOTHYROXINE. [Concomitant]
     Active Substance: LEVOTHYROXINE
     Dosage: UNK
  5. PARACETAMOL [Concomitant]
     Active Substance: ACETAMINOPHEN
     Dosage: UNK
  6. CARBAMAZEPINE. [Suspect]
     Active Substance: CARBAMAZEPINE
     Indication: TRIGEMINAL NEURALGIA
     Dosage: 100 MG, BID
     Route: 048
     Dates: start: 20160812, end: 20160915
  7. AMLODIPINE [Concomitant]
     Active Substance: AMLODIPINE BESYLATE
     Dosage: UNK

REACTIONS (7)
  - Neutrophil count decreased [Unknown]
  - Agranulocytosis [Recovering/Resolving]
  - Asthenia [Unknown]
  - Pyrexia [Unknown]
  - Malaise [Unknown]
  - Mouth ulceration [Unknown]
  - Cough [Unknown]

NARRATIVE: CASE EVENT DATE: 20160815
